FAERS Safety Report 5420853-8 (Version None)
Quarter: 2007Q3

REPORT INFORMATION
  Report Type: 
  Country: None (occurrence: None)
  Receive Date: 20070816
  Receipt Date: 20070808
  Transmission Date: 20080115
  Serious: Yes (Other)
  Sender: FDA-Public Use
  Company Number: GXKR2007GB06828

PATIENT
  Sex: Male

DRUGS (1)
  1. PAROXETINE [Suspect]
     Dosage: 2 DF

REACTIONS (2)
  - RASH ERYTHEMATOUS [None]
  - SCROTAL SWELLING [None]
